FAERS Safety Report 10880169 (Version 1)
Quarter: 2015Q1

REPORT INFORMATION
  Report Type: Spontaneous
  Country: US (occurrence: US)
  Receive Date: 20150302
  Receipt Date: 20150302
  Transmission Date: 20150721
  Serious: No
  Sender: FDA-Public Use
  Company Number: US-PFIZER INC-2015070073

PATIENT
  Age: 76 Year
  Sex: Male
  Weight: 91 kg

DRUGS (1)
  1. ZYVOX [Suspect]
     Active Substance: LINEZOLID
     Indication: INFECTION
     Dosage: UNK

REACTIONS (2)
  - Therapeutic response unexpected [Unknown]
  - Blood glucose normal [Unknown]
